FAERS Safety Report 16564887 (Version 2)
Quarter: 2019Q3

REPORT INFORMATION
  Report Type: Spontaneous
  Country: US (occurrence: US)
  Receive Date: 20190712
  Receipt Date: 20190823
  Transmission Date: 20191004
  Serious: Yes (Other)
  Sender: FDA-Public Use
  Company Number: US-ASTRAZENECA-2019SF00224

PATIENT
  Age: 51 Year
  Sex: Male
  Weight: 122.5 kg

DRUGS (12)
  1. NEXIUM 24HR [Suspect]
     Active Substance: ESOMEPRAZOLE MAGNESIUM
     Indication: DYSPEPSIA
     Route: 048
  2. NORVASC [Concomitant]
     Active Substance: AMLODIPINE BESYLATE
     Indication: BLOOD PRESSURE ABNORMAL
     Route: 048
  3. RAMIPRIL. [Concomitant]
     Active Substance: RAMIPRIL
     Indication: BLOOD PRESSURE ABNORMAL
     Route: 048
     Dates: start: 2009
  4. METOPROLOL. [Concomitant]
     Active Substance: METOPROLOL
     Dosage: 50.0MG UNKNOWN
     Dates: start: 2011
  5. SIMVASTATIN. [Concomitant]
     Active Substance: SIMVASTATIN
  6. NEXIUM 24HR [Suspect]
     Active Substance: ESOMEPRAZOLE MAGNESIUM
     Indication: DYSPEPSIA
     Route: 048
  7. METOPROLOL. [Concomitant]
     Active Substance: METOPROLOL
     Dosage: 100.0MG UNKNOWN
     Dates: start: 201905
  8. BABY ASPIRIN [Concomitant]
     Active Substance: ASPIRIN
     Route: 048
  9. METOPROLOL. [Concomitant]
     Active Substance: METOPROLOL
     Dosage: 150.0MG UNKNOWN
     Dates: start: 201903
  10. METOPROLOL. [Concomitant]
     Active Substance: METOPROLOL
     Dosage: 200.0MG UNKNOWN
     Dates: start: 201903
  11. METOPROLOL. [Concomitant]
     Active Substance: METOPROLOL
     Dosage: 100.0MG UNKNOWN
     Dates: start: 201902
  12. JANUVIA [Concomitant]
     Active Substance: SITAGLIPTIN PHOSPHATE
     Indication: DIABETES MELLITUS
     Route: 048
     Dates: start: 201906

REACTIONS (7)
  - Inguinal hernia [Unknown]
  - Infection [Unknown]
  - Nausea [Unknown]
  - Intentional product misuse [Unknown]
  - Product dose omission [Unknown]
  - Product physical issue [Unknown]
  - Exposure via skin contact [Unknown]

NARRATIVE: CASE EVENT DATE: 201902
